FAERS Safety Report 14531253 (Version 3)
Quarter: 2025Q3

REPORT INFORMATION
  Report Type: Spontaneous
  Country: EU (occurrence: EU)
  Receive Date: 20180214
  Receipt Date: 20250806
  Transmission Date: 20251020
  Serious: Yes (Other)
  Sender: PURDUE
  Company Number: EU-EMA-DD-20171212-NEGIEVPROD-113527

PATIENT
  Age: 61 Year
  Sex: Male

DRUGS (10)
  1. OXYCODONE HYDROCHLORIDE [Suspect]
     Active Substance: OXYCODONE HYDROCHLORIDE
     Indication: Peripheral sensory neuropathy
     Dosage: 10 MILLIGRAM, TWO TIMES A DAY
     Route: 065
  2. OXYCODONE HYDROCHLORIDE [Suspect]
     Active Substance: OXYCODONE HYDROCHLORIDE
     Dosage: 10 MILLIGRAM, ONCE A DAY (CONTROLLED-RELEASE)
     Route: 065
  3. PREGABALIN [Suspect]
     Active Substance: PREGABALIN
     Indication: Peripheral sensory neuropathy
     Dosage: 75 MILLIGRAM, TWO TIMES A DAY
     Route: 065
  4. PREGABALIN [Suspect]
     Active Substance: PREGABALIN
     Dosage: 150 MILLIGRAM, ONCE A DAY
     Route: 065
  5. PREGABALIN [Suspect]
     Active Substance: PREGABALIN
     Dosage: 75 MILLIGRAM, ONCE A DAY
     Route: 065
  6. PREGABALIN [Suspect]
     Active Substance: PREGABALIN
     Dosage: 150 MILLIGRAM, TWO TIMES A DAY
     Route: 065
  7. TAPENTADOL [Suspect]
     Active Substance: TAPENTADOL
     Indication: Peripheral sensory neuropathy
     Dosage: 50 MILLIGRAM, ONCE A DAY
     Route: 065
  8. TAPENTADOL [Suspect]
     Active Substance: TAPENTADOL
     Dosage: 100 MG, Q.H.S.
     Route: 065
  9. AMITRIPTYLINE [Suspect]
     Active Substance: AMITRIPTYLINE
     Indication: Peripheral sensory neuropathy
     Dosage: 25 MILLIGRAM, ONCE A DAY
     Route: 065
  10. OXALIPLATIN [Suspect]
     Active Substance: OXALIPLATIN
     Indication: Adenocarcinoma of colon
     Route: 041

REACTIONS (17)
  - Peripheral sensory neuropathy [Recovering/Resolving]
  - Sedation complication [Unknown]
  - Balance disorder [Unknown]
  - Palpitations [Unknown]
  - Quality of life decreased [Recovered/Resolved]
  - Dysaesthesia [Recovering/Resolving]
  - Allodynia [Recovering/Resolving]
  - Pain in extremity [Recovering/Resolving]
  - Burning sensation [Recovering/Resolving]
  - Nausea [Unknown]
  - Disturbance in attention [Unknown]
  - Vomiting [Unknown]
  - Constipation [Unknown]
  - Hypoaesthesia [Recovering/Resolving]
  - Fatigue [Unknown]
  - Hyperaesthesia [Recovering/Resolving]
  - Asthenia [Unknown]
